FAERS Safety Report 14085162 (Version 2)
Quarter: 2017Q4

REPORT INFORMATION
  Report Type: Spontaneous
  Country: FR (occurrence: FR)
  Receive Date: 20171013
  Receipt Date: 20171020
  Transmission Date: 20180321
  Serious: Yes (Hospitalization, Other)
  Sender: FDA-Public Use
  Company Number: FR-BEH-2017084248

PATIENT
  Age: 58 Year
  Sex: Female

DRUGS (8)
  1. PRIMPERAN [Suspect]
     Active Substance: METOCLOPRAMIDE HYDROCHLORIDE
     Indication: PROPHYLAXIS OF NAUSEA AND VOMITING
     Dosage: 10 MG, QD
     Route: 042
     Dates: start: 20170912, end: 20170914
  2. PRIVIGEN [Suspect]
     Active Substance: HUMAN IMMUNOGLOBULIN G
     Indication: POLYMYOSITIS
     Dosage: 40 G, TOT, 1 IN 1 CYCLE
     Route: 042
     Dates: start: 20170911, end: 20170912
  3. PRIVIGEN [Suspect]
     Active Substance: HUMAN IMMUNOGLOBULIN G
     Indication: PARANEOPLASTIC DERMATOMYOSITIS
  4. COLCHICINE OPOCALCIUM [Suspect]
     Active Substance: COLCHICINE
     Dosage: UNK
     Route: 048
     Dates: start: 20170913
  5. IMIPENEM CILASTATIN                /00820501/ [Suspect]
     Active Substance: CILASTATIN SODIUM\IMIPENEM
     Indication: INFECTION
     Dosage: 4 G, TOT
     Route: 042
     Dates: start: 20170914, end: 20170914
  6. COLCHICINE OPOCALCIUM [Suspect]
     Active Substance: COLCHICINE
     Indication: GOUT
     Dosage: 1 DF, QD
     Route: 048
     Dates: start: 20170905, end: 20170909
  7. AMIKACIN                           /00391002/ [Suspect]
     Active Substance: AMIKACIN
     Indication: INFECTION
     Dosage: 1500 MG, QD
     Route: 042
     Dates: start: 20170914, end: 20170914
  8. CEFTRIAXONE PANPHARMA [Suspect]
     Active Substance: CEFTRIAXONE
     Indication: INFECTION
     Dosage: 1 G, QD
     Route: 042
     Dates: start: 20170914, end: 20170915

REACTIONS (4)
  - Anaemia [Unknown]
  - Infection [Unknown]
  - Pyrexia [Unknown]
  - Leukopenia [Recovered/Resolved]

NARRATIVE: CASE EVENT DATE: 20170915
